FAERS Safety Report 21441583 (Version 2)
Quarter: 2022Q4

REPORT INFORMATION
  Report Type: Spontaneous
  Country: US (occurrence: US)
  Receive Date: 20221011
  Receipt Date: 20221208
  Transmission Date: 20230113
  Serious: Yes (Hospitalization)
  Sender: FDA-Public Use
  Company Number: US-SANOFI-01308045

PATIENT
  Age: 80 Year
  Sex: Female

DRUGS (1)
  1. DUPIXENT [Suspect]
     Active Substance: DUPILUMAB
     Indication: Nasal polyps
     Dosage: 300 MG QOW
     Dates: start: 20220901

REACTIONS (5)
  - Eosinophil count increased [Recovered/Resolved]
  - Condition aggravated [Recovered/Resolved]
  - White blood cell count increased [Unknown]
  - Cough [Unknown]
  - Throat clearing [Unknown]
